FAERS Safety Report 10524065 (Version 2)
Quarter: 2014Q4

REPORT INFORMATION
  Report Type: Spontaneous
  Country: CO (occurrence: CO)
  Receive Date: 20141017
  Receipt Date: 20141017
  Transmission Date: 20150528
  Serious: Yes (Other)
  Sender: FDA-Public Use
  Company Number: CO-ENDO PHARMACEUTICALS INC.-AVEE20140082

PATIENT
  Sex: Male

DRUGS (2)
  1. AVEED [Suspect]
     Active Substance: TESTOSTERONE UNDECANOATE
     Indication: HORMONE REPLACEMENT THERAPY
     Route: 030
     Dates: start: 2012
  2. TESTOVIRON DEPOT [Concomitant]
     Active Substance: TESTOSTERONE ENANTHATE
     Indication: TESTICULAR DISORDER
     Route: 065
     Dates: start: 1992, end: 2012

REACTIONS (9)
  - Toothache [Recovered/Resolved]
  - Cough [Recovered/Resolved]
  - Hypersensitivity [Recovered/Resolved]
  - Choking [Recovered/Resolved]
  - Respiratory disorder [Recovered/Resolved]
  - Pruritus [Recovered/Resolved]
  - Headache [Recovered/Resolved]
  - Chest pain [Recovered/Resolved]
  - Dysphonia [Recovered/Resolved]
